FAERS Safety Report 19932221 (Version 1)
Quarter: 2021Q4

REPORT INFORMATION
  Report Type: Spontaneous
  Country: US (occurrence: US)
  Receive Date: 20211008
  Receipt Date: 20211008
  Transmission Date: 20220303
  Serious: Yes (Other)
  Sender: FDA-Public Use
  Company Number: US-DECIPHERA PHARMACEUTICALS LLC-2021US000857

PATIENT
  Sex: Female

DRUGS (1)
  1. QINLOCK [Suspect]
     Active Substance: RIPRETINIB
     Indication: Gastrointestinal stromal tumour
     Dosage: 150 MILLIGRAM, QD
     Route: 048
     Dates: start: 20210521

REACTIONS (4)
  - Gastric ulcer haemorrhage [Unknown]
  - Haemoglobin decreased [Unknown]
  - Alopecia [Unknown]
  - Dry skin [Unknown]

NARRATIVE: CASE EVENT DATE: 20210101
